FAERS Safety Report 9884525 (Version 4)
Quarter: 2014Q3

REPORT INFORMATION
  Report Type: Spontaneous
  Country: US (occurrence: US)
  Receive Date: 20140210
  Receipt Date: 20140915
  Transmission Date: 20150326
  Serious: Yes (Hospitalization, Other)
  Sender: FDA-Public Use
  Company Number: US-009507513-1401USA014303

PATIENT
  Sex: Female
  Weight: 91.8 kg

DRUGS (3)
  1. ALENDRONATE SODIUM. [Suspect]
     Active Substance: ALENDRONATE SODIUM
     Indication: OSTEOPENIA
     Dosage: 70 MG, UNK
     Route: 048
     Dates: start: 20080301, end: 20120330
  2. FOSAMAX [Suspect]
     Active Substance: ALENDRONATE SODIUM
     Dosage: UNK
     Route: 048
     Dates: start: 2004, end: 2012
  3. FOSAMAX [Suspect]
     Active Substance: ALENDRONATE SODIUM
     Indication: OSTEOPENIA
     Dosage: 70 MG, QW
     Route: 048
     Dates: start: 20040313, end: 20080126

REACTIONS (36)
  - Cataract operation [Unknown]
  - Breast calcifications [Unknown]
  - Tachycardia [Recovered/Resolved]
  - Cataract [Unknown]
  - Femur fracture [Recovered/Resolved]
  - Arthroscopic surgery [Unknown]
  - Lower limb fracture [Unknown]
  - Hypoxia [Unknown]
  - Diabetes mellitus [Unknown]
  - Osteoarthritis [Unknown]
  - Anaemia postoperative [Unknown]
  - Osteomyelitis [Unknown]
  - Breast mass [Unknown]
  - Intraductal papilloma of breast [Unknown]
  - Synovial cyst [Unknown]
  - Intramedullary rod insertion [Unknown]
  - Femur fracture [Unknown]
  - Breast lump removal [Unknown]
  - Fall [Unknown]
  - Invasive ductal breast carcinoma [Unknown]
  - Breast lump removal [Unknown]
  - Stress fracture [Unknown]
  - Impaired healing [Unknown]
  - Hypertension [Unknown]
  - Osteoporosis [Unknown]
  - Type V hyperlipidaemia [Unknown]
  - Hyperplasia [Unknown]
  - Hypokalaemia [Unknown]
  - Depression [Unknown]
  - Pain in extremity [Recovered/Resolved]
  - Meniscus injury [Unknown]
  - Tendon sheath lesion excision [Unknown]
  - Cataract operation [Unknown]
  - Carpal tunnel decompression [Unknown]
  - Fibrocystic breast disease [Unknown]
  - Radiotherapy to breast [Unknown]

NARRATIVE: CASE EVENT DATE: 2004
